FAERS Safety Report 7114032-6 (Version None)
Quarter: 2010Q4

REPORT INFORMATION
  Report Type: 
  Country: None (occurrence: None)
  Receive Date: 20101119
  Receipt Date: 20101110
  Transmission Date: 20110411
  Serious: Yes (Hospitalization)
  Sender: FDA-Public Use
  Company Number: B0684904A

PATIENT
  Age: 74 Year
  Sex: Male
  Weight: 87 kg

DRUGS (2)
  1. ARIXTRA [Suspect]
     Indication: PROPHYLAXIS
     Dosage: 75MG PER DAY
     Route: 058
     Dates: start: 20100916, end: 20100919
  2. MARCUMAR [Suspect]
     Indication: ATRIAL FIBRILLATION
     Route: 048
     Dates: end: 20100901

REACTIONS (9)
  - ABDOMINAL PAIN [None]
  - DELIRIUM [None]
  - DRUG INTERACTION [None]
  - HAEMATOMA [None]
  - HAEMOGLOBIN DECREASED [None]
  - HAEMORRHAGIC ANAEMIA [None]
  - HYPOTENSION [None]
  - PERITONEAL HAEMORRHAGE [None]
  - RENAL FAILURE CHRONIC [None]
